FAERS Safety Report 12914982 (Version 1)
Quarter: 2016Q4

REPORT INFORMATION
  Report Type: Spontaneous
  Country: US (occurrence: US)
  Receive Date: 20161106
  Receipt Date: 20161106
  Transmission Date: 20170207
  Serious: No
  Sender: FDA-Public Use
  Company Number: US-RELYPSA-RLY2016002397

PATIENT
  Sex: Female

DRUGS (19)
  1. CALCIUM ACETATE. [Concomitant]
     Active Substance: CALCIUM ACETATE
  2. NORVASC [Concomitant]
     Active Substance: AMLODIPINE BESYLATE
  3. PLAVIX [Concomitant]
     Active Substance: CLOPIDOGREL BISULFATE
  4. PHOSLO [Concomitant]
     Active Substance: CALCIUM ACETATE
  5. ATORVASTATIN CALCIUM. [Concomitant]
     Active Substance: ATORVASTATIN CALCIUM
  6. DIALYVITE WITH ZINC [Concomitant]
     Active Substance: ASCORBIC ACID\BIOTIN\CALCIUM PANTOTHENATE\COBALAMIN\FOLIC ACID\NIACINAMIDE\PYRIDOXINE HYDROCHLORIDE\RIBOFLAVIN\THIAMINE MONONITRATE\ZINC CITRATE
  7. GABAPENTIN. [Concomitant]
     Active Substance: GABAPENTIN
  8. LEVOTHYROXINE SODIUM. [Concomitant]
     Active Substance: LEVOTHYROXINE SODIUM
  9. VITAMIN D3 [Concomitant]
     Active Substance: CHOLECALCIFEROL
  10. EMLA [Concomitant]
     Active Substance: LIDOCAINE\PRILOCAINE
  11. NOVOLIN [Concomitant]
     Active Substance: INSULIN HUMAN
  12. VELTASSA [Suspect]
     Active Substance: PATIROMER
     Indication: HYPERKALAEMIA
     Dosage: 8.4 G, QD
     Route: 048
  13. LEVEMIR [Concomitant]
     Active Substance: INSULIN DETEMIR
  14. ASPIRIN                            /00002701/ [Concomitant]
     Active Substance: ASPIRIN
  15. SODIUM POLYSTYRENE SULFONATE. [Concomitant]
     Active Substance: SODIUM POLYSTYRENE SULFONATE
  16. VITAMIN E                          /00110501/ [Concomitant]
     Active Substance: TOCOPHEROL
  17. CARDURA [Concomitant]
     Active Substance: DOXAZOSIN MESYLATE
  18. KAYEXALATE [Concomitant]
     Active Substance: SODIUM POLYSTYRENE SULFONATE
  19. PROPRANOLOL HCL [Concomitant]
     Active Substance: PROPRANOLOL HYDROCHLORIDE

REACTIONS (1)
  - Diarrhoea [Unknown]
